FAERS Safety Report 5221423-7 (Version None)
Quarter: 2007Q1

REPORT INFORMATION
  Report Type: 
  Country: None (occurrence: None)
  Receive Date: 20070126
  Receipt Date: 20070115
  Transmission Date: 20070707
  Serious: Yes (Hospitalization)
  Sender: FDA-Public Use
  Company Number: GB-PFIZER INC-2007004695

PATIENT
  Sex: Male
  Weight: 58 kg

DRUGS (1)
  1. SU-011,248 [Suspect]
     Indication: RENAL CELL CARCINOMA STAGE UNSPECIFIED
     Dosage: FREQ:DAILY, CYCLIC
     Route: 048

REACTIONS (2)
  - CONFUSIONAL STATE [None]
  - SYNCOPE [None]
